FAERS Safety Report 10198571 (Version 1)
Quarter: 2014Q2

REPORT INFORMATION
  Report Type: Spontaneous
  Country: US (occurrence: US)
  Receive Date: 20140527
  Receipt Date: 20140527
  Transmission Date: 20141212
  Serious: No
  Sender: FDA-Public Use
  Company Number: US-NOVEN-13US007160

PATIENT
  Sex: 0

DRUGS (3)
  1. DAYTRANA [Suspect]
     Indication: ANXIETY
     Dosage: 20 MG, QD
     Route: 062
     Dates: start: 20130606
  2. DAYTRANA [Suspect]
     Indication: DEPRESSION
  3. DAYTRANA [Suspect]
     Indication: DISTURBANCE IN ATTENTION

REACTIONS (5)
  - Anxiety [Not Recovered/Not Resolved]
  - Off label use [Not Recovered/Not Resolved]
  - Wrong technique in drug usage process [Not Recovered/Not Resolved]
  - Drug administration error [Not Recovered/Not Resolved]
  - Product quality issue [Not Recovered/Not Resolved]
